FAERS Safety Report 25273923 (Version 1)
Quarter: 2025Q2

REPORT INFORMATION
  Report Type: Spontaneous
  Country: CA (occurrence: CA)
  Receive Date: 20250506
  Receipt Date: 20250506
  Transmission Date: 20250716
  Serious: Yes (Other)
  Sender: MARKSANS PHARMA LIMITED
  Company Number: CA-MARKSANS PHARMA LIMITED-MPL202500047

PATIENT

DRUGS (1)
  1. IBUPROFEN [Suspect]
     Active Substance: IBUPROFEN
     Indication: Patent ductus arteriosus
     Route: 048

REACTIONS (2)
  - Necrotising colitis [Unknown]
  - Product use in unapproved indication [Unknown]
